FAERS Safety Report 20111465 (Version 1)
Quarter: 2021Q4

REPORT INFORMATION
  Report Type: Spontaneous
  Country: US (occurrence: US)
  Receive Date: 20211125
  Receipt Date: 20211125
  Transmission Date: 20220303
  Serious: No
  Sender: FDA-Public Use
  Company Number: MIQ-07012021-63

PATIENT

DRUGS (2)
  1. IVERMECTIN [Suspect]
     Active Substance: IVERMECTIN
     Indication: Product used for unknown indication
     Dosage: 16.5 MG, SINGLE (5.5 TABLETS)
     Route: 048
     Dates: start: 202106, end: 202106
  2. IVERMECTIN [Suspect]
     Active Substance: IVERMECTIN
     Dosage: 16.5 MG, SINGLE (5.5 TABLETS)
     Route: 048
     Dates: start: 202106, end: 202106

REACTIONS (1)
  - Vision blurred [Not Recovered/Not Resolved]

NARRATIVE: CASE EVENT DATE: 20210601
